FAERS Safety Report 25192000 (Version 1)
Quarter: 2025Q2

REPORT INFORMATION
  Report Type: Spontaneous
  Country: US (occurrence: None)
  Receive Date: 20250410
  Receipt Date: 20250410
  Transmission Date: 20250717
  Serious: No
  Sender: FDA-CTU
  Company Number: None

PATIENT

DRUGS (1)
  1. JAKAFI [Suspect]
     Active Substance: RUXOLITINIB

REACTIONS (4)
  - Product dispensing error [None]
  - Inappropriate schedule of product administration [None]
  - Incorrect dose administered [None]
  - Product administration error [None]

NARRATIVE: CASE EVENT DATE: 20250410
